FAERS Safety Report 4477935-7 (Version None)
Quarter: 2004Q4

REPORT INFORMATION
  Report Type: 
  Country: None (occurrence: None)
  Receive Date: 20041018
  Receipt Date: 20041008
  Transmission Date: 20050328
  Serious: Yes (Life-Threatening, Hospitalization, Disabling)
  Sender: FDA-Public Use
  Company Number: US-MERCK-0410USA01126

PATIENT
  Age: 27 Year
  Sex: Male

DRUGS (2)
  1. VIOXX [Suspect]
     Indication: ANALGESIC EFFECT
     Route: 048
     Dates: start: 20020801, end: 20040101
  2. VIOXX [Suspect]
     Route: 048
     Dates: start: 20020801, end: 20040101

REACTIONS (3)
  - BRADYCARDIA [None]
  - CHEST PAIN [None]
  - HEART RATE IRREGULAR [None]
